FAERS Safety Report 6241432-9 (Version None)
Quarter: 2009Q2

REPORT INFORMATION
  Report Type: 
  Country: None (occurrence: None)
  Receive Date: 20090619
  Receipt Date: 20090619
  Transmission Date: 20091009
  Serious: No
  Sender: FDA-Public Use
  Company Number: None

PATIENT
  Sex: Female
  Weight: 68.0396 kg

DRUGS (2)
  1. ZICAM SWABS [Suspect]
  2. ZICAM NASAL SPRAY [Suspect]

REACTIONS (1)
  - ANOSMIA [None]
